FAERS Safety Report 5942926-3 (Version None)
Quarter: 2008Q4

REPORT INFORMATION
  Report Type: 
  Country: None (occurrence: None)
  Receive Date: 20081103
  Receipt Date: 20081021
  Transmission Date: 20090506
  Serious: Yes (Hospitalization)
  Sender: FDA-Public Use
  Company Number: 230913K08USA

PATIENT
  Age: 44 Year
  Sex: Female

DRUGS (3)
  1. REBIF [Suspect]
     Indication: MULTIPLE SCLEROSIS
     Dosage: 44 MCG, 3 IN 1 WEEKS, SUBCUTANEOUS
     Route: 058
     Dates: start: 20080109
  2. ARICEPT [Concomitant]
  3. KLONOPIN [Concomitant]

REACTIONS (5)
  - AMNESIA [None]
  - BACK PAIN [None]
  - DEPRESSION [None]
  - FEELING JITTERY [None]
  - MYOCARDIAL INFARCTION [None]
